FAERS Safety Report 5341604-1 (Version None)
Quarter: 2007Q2

REPORT INFORMATION
  Report Type: 
  Country: None (occurrence: None)
  Receive Date: 20070601
  Receipt Date: 20070529
  Transmission Date: 20071010
  Serious: Yes (Hospitalization, Other)
  Sender: FDA-Public Use
  Company Number: US-BAYER-200711708BCC

PATIENT
  Sex: Male
  Weight: 73 kg

DRUGS (1)
  1. PHILLIPS MILK OF MAGNESIA LIQUID ORIGINAL [Suspect]
     Indication: DRUG USE FOR UNKNOWN INDICATION
     Route: 048
     Dates: start: 20070528

REACTIONS (4)
  - ABDOMINAL PAIN [None]
  - CYSTITIS [None]
  - DIARRHOEA [None]
  - NAUSEA [None]
